FAERS Safety Report 5130004-5 (Version None)
Quarter: 2006Q4

REPORT INFORMATION
  Report Type: 
  Country: None (occurrence: None)
  Receive Date: 20061013
  Receipt Date: 20060927
  Transmission Date: 20070319
  Serious: Yes (Life-Threatening, Hospitalization)
  Sender: FDA-Public Use
  Company Number: 8019291

PATIENT
  Age: 15 Year
  Sex: Female

DRUGS (4)
  1. PREDNISOLONE [Suspect]
  2. MESTINON [Suspect]
     Indication: MYASTHENIA GRAVIS
     Dosage: 90 MG 4/D PO
     Route: 048
     Dates: start: 20050920, end: 20051101
  3. MINOCIN [Suspect]
  4. OMEPRAZOLE [Suspect]

REACTIONS (1)
  - TOXIC EPIDERMAL NECROLYSIS [None]
